FAERS Safety Report 6246041-3 (Version None)
Quarter: 2009Q2

REPORT INFORMATION
  Report Type: 
  Country: None (occurrence: None)
  Receive Date: 20090626
  Receipt Date: 20090123
  Transmission Date: 20091009
  Serious: No
  Sender: FDA-Public Use
  Company Number: A0759992A

PATIENT
  Age: 33 Year
  Sex: Female

DRUGS (4)
  1. IMITREX [Suspect]
     Indication: MIGRAINE
     Dosage: 100MG AS REQUIRED
     Route: 048
     Dates: start: 19990101
  2. LYRICA [Concomitant]
  3. SKELAXIN [Concomitant]
  4. LUNESTA [Concomitant]

REACTIONS (2)
  - SOMNOLENCE [None]
  - THERAPEUTIC RESPONSE UNEXPECTED [None]
